FAERS Safety Report 8600335 (Version 3)
Quarter: 2014Q1

REPORT INFORMATION
  Report Type: Spontaneous
  Country: US (occurrence: US)
  Receive Date: 20120606
  Receipt Date: 20140110
  Transmission Date: 20141002
  Serious: Yes (Hospitalization, Other)
  Sender: FDA-Public Use
  Company Number: US-ASTRAZENECA-2012SE35466

PATIENT
  Age: 58 Year
  Sex: Male

DRUGS (13)
  1. NEXIUM [Suspect]
     Indication: GASTROOESOPHAGEAL REFLUX DISEASE
     Dosage: 40 MG  ONE TIMES A DAY OTHER TIMES TWO TIMES A DAY
     Route: 048
     Dates: start: 2006, end: 2011
  2. NEXIUM [Suspect]
     Indication: GASTRIC DISORDER
     Dosage: 40 MG  ONE TIMES A DAY OTHER TIMES TWO TIMES A DAY
     Route: 048
     Dates: start: 2006, end: 2011
  3. NEXIUM [Suspect]
     Indication: GASTROOESOPHAGEAL REFLUX DISEASE
     Route: 048
     Dates: start: 20060228
  4. NEXIUM [Suspect]
     Indication: GASTRIC DISORDER
     Route: 048
     Dates: start: 20060228
  5. OMEPRAZOLE [Suspect]
     Route: 048
  6. PROTONIX [Concomitant]
  7. ZANTAC [Concomitant]
  8. PEPCID [Concomitant]
  9. ALBUTEROL [Concomitant]
     Indication: ASTHMA
  10. SEROQUEL [Concomitant]
     Dates: start: 20050518
  11. ZETIA [Concomitant]
     Dates: start: 20130220
  12. TEMAZEPAM [Concomitant]
     Dates: start: 20121206
  13. LEVOTHYROXINE SODIUM [Concomitant]
     Route: 048
     Dates: start: 20121206

REACTIONS (11)
  - Bone loss [Unknown]
  - Diabetes mellitus [Unknown]
  - Diabetic neuropathy [Unknown]
  - Osteoporosis [Unknown]
  - Multiple fractures [Unknown]
  - Bone disorder [Unknown]
  - Arthritis [Unknown]
  - Cataract [Unknown]
  - Cardiovascular disorder [Unknown]
  - Glaucoma [Unknown]
  - Angina pectoris [Unknown]
